FAERS Safety Report 7490493-8 (Version None)
Quarter: 2011Q2

REPORT INFORMATION
  Report Type: 
  Country: None (occurrence: None)
  Receive Date: 20110519
  Receipt Date: 20110511
  Transmission Date: 20111010
  Serious: Yes (Life-Threatening, Hospitalization)
  Sender: FDA-Public Use
  Company Number: FR-SANOFI-AVENTIS-2011SA008153

PATIENT
  Age: 74 Year
  Sex: Female

DRUGS (4)
  1. DICLOFENAC SODIUM [Suspect]
     Route: 058
  2. LASIX [Suspect]
     Route: 048
  3. METFORMIN HCL [Suspect]
     Route: 048
  4. IRBESARTAN + HYDROCHLOROTHIAZIDE [Suspect]
     Route: 048

REACTIONS (5)
  - ARRHYTHMIA SUPRAVENTRICULAR [None]
  - HYPERKALAEMIA [None]
  - RENAL FAILURE ACUTE [None]
  - LACTIC ACIDOSIS [None]
  - ELECTROCARDIOGRAM T WAVE PEAKED [None]
